FAERS Safety Report 8066836-3 (Version None)
Quarter: 2011Q4

REPORT INFORMATION
  Report Type: 
  Country: None (occurrence: None)
  Receive Date: 20111221
  Receipt Date: 20110426
  Transmission Date: 20120403
  Serious: Yes (Hospitalization)
  Sender: FDA-Public Use
  Company Number: PHHY2011US10960

PATIENT
  Age: 10 Year
  Sex: Female
  Weight: 32.9 kg

DRUGS (4)
  1. FOLIC ACID [Concomitant]
  2. ZANTAC [Concomitant]
  3. PENICILLIN [Concomitant]
  4. EXJADE [Suspect]
     Indication: SICKLE CELL ANAEMIA
     Dosage: 750 MG, DAILY, ORAL
     Route: 048

REACTIONS (1)
  - PYREXIA [None]
